FAERS Safety Report 6820282-6 (Version None)
Quarter: 2010Q3

REPORT INFORMATION
  Report Type: 
  Country: None (occurrence: None)
  Receive Date: 20100707
  Receipt Date: 20100527
  Transmission Date: 20110219
  Serious: No
  Sender: FDA-Public Use
  Company Number: US-BAYER-201025080NA

PATIENT
  Age: 63 Year
  Sex: Female

DRUGS (1)
  1. MAGNEVIST [Suspect]
     Indication: BACK PAIN
     Dosage: AS USED: 20 ML  UNIT DOSE: 20 ML
     Route: 042
     Dates: start: 20100526, end: 20100526

REACTIONS (2)
  - EYE PRURITUS [None]
  - PRURITUS [None]
